FAERS Safety Report 4783523-5 (Version None)
Quarter: 2005Q3

REPORT INFORMATION
  Report Type: 
  Country: None (occurrence: None)
  Receive Date: 20050929
  Receipt Date: 20050923
  Transmission Date: 20060218
  Serious: Yes (Hospitalization)
  Sender: FDA-Public Use
  Company Number: US-BRISTOL-MYERS SQUIBB COMPANY-13121975

PATIENT
  Age: 70 Year
  Sex: Male

DRUGS (1)
  1. TEQUIN [Suspect]

REACTIONS (3)
  - BLOOD GLUCOSE INCREASED [None]
  - DELUSION [None]
  - DISORIENTATION [None]
